FAERS Safety Report 24686969 (Version 1)
Quarter: 2024Q4

REPORT INFORMATION
  Report Type: Spontaneous
  Country: FR (occurrence: FR)
  Receive Date: 20241202
  Receipt Date: 20241202
  Transmission Date: 20250114
  Serious: Yes (Hospitalization)
  Sender: FRESENIUS KABI
  Company Number: None

PATIENT
  Age: 59 Year
  Sex: Male
  Weight: 64 kg

DRUGS (17)
  1. PEMETREXED [Suspect]
     Active Substance: PEMETREXED
     Indication: Bronchial carcinoma
     Dosage: C3
     Route: 042
     Dates: start: 20241010, end: 20241010
  2. PEMETREXED [Suspect]
     Active Substance: PEMETREXED
     Dosage: C2
     Route: 042
     Dates: start: 20240918, end: 20240918
  3. PEMETREXED [Suspect]
     Active Substance: PEMETREXED
     Dosage: C1
     Route: 042
     Dates: start: 20240828, end: 20240828
  4. CARBOPLATIN [Suspect]
     Active Substance: CARBOPLATIN
     Indication: Bronchial carcinoma
     Dosage: C3
     Route: 042
     Dates: start: 20241010, end: 20241010
  5. CARBOPLATIN [Suspect]
     Active Substance: CARBOPLATIN
     Dosage: C2
     Route: 042
     Dates: start: 20240918, end: 20240918
  6. CARBOPLATIN [Suspect]
     Active Substance: CARBOPLATIN
     Dosage: C1
     Route: 042
     Dates: start: 20240828, end: 20240828
  7. KEYTRUDA [Suspect]
     Active Substance: PEMBROLIZUMAB
     Indication: Bronchial carcinoma
     Dosage: C3
     Route: 042
     Dates: start: 20241010, end: 20241010
  8. KEYTRUDA [Suspect]
     Active Substance: PEMBROLIZUMAB
     Dosage: C2
     Route: 042
     Dates: start: 20240918, end: 20240918
  9. KEYTRUDA [Suspect]
     Active Substance: PEMBROLIZUMAB
     Dosage: C1
     Route: 042
     Dates: start: 20240828, end: 20240828
  10. HYDROXYZINE HYDROCHLORIDE [Concomitant]
     Active Substance: HYDROXYZINE HYDROCHLORIDE
     Indication: Premedication
     Route: 042
     Dates: start: 20240828, end: 20241010
  11. SOLUPRED [Concomitant]
     Indication: Premedication
     Route: 042
     Dates: start: 20240828, end: 20241010
  12. FOLIC ACID [Concomitant]
     Active Substance: FOLIC ACID
     Indication: Premedication
     Route: 042
     Dates: start: 20240828, end: 20241010
  13. PRIMPERAN [Concomitant]
     Active Substance: METOCLOPRAMIDE HYDROCHLORIDE
     Indication: Product used for unknown indication
  14. PANTOPRAZOLE [Concomitant]
     Active Substance: PANTOPRAZOLE
     Indication: Product used for unknown indication
     Dates: start: 20240828
  15. KARDEGIC [Concomitant]
     Active Substance: ASPIRIN DL-LYSINE
     Indication: Product used for unknown indication
  16. SKENAN [Concomitant]
     Active Substance: MORPHINE SULFATE
     Indication: Product used for unknown indication
  17. MORPHINE SULFATE [Concomitant]
     Active Substance: MORPHINE SULFATE
     Indication: Product used for unknown indication

REACTIONS (1)
  - Stevens-Johnson syndrome [Recovering/Resolving]

NARRATIVE: CASE EVENT DATE: 20241017
